FAERS Safety Report 23431573 (Version 1)
Quarter: 2024Q1

REPORT INFORMATION
  Report Type: Spontaneous
  Country: CN (occurrence: CN)
  Receive Date: 20240123
  Receipt Date: 20240123
  Transmission Date: 20240410
  Serious: Yes (Hospitalization)
  Sender: FDA-Public Use
  Company Number: CN-002147023-NVSC2024CN007455

PATIENT
  Age: 49 Year
  Sex: Male
  Weight: 58 kg

DRUGS (2)
  1. ENTRESTO [Suspect]
     Active Substance: SACUBITRIL\VALSARTAN
     Indication: Hypertension
     Dosage: 100 MG, BID
     Route: 048
     Dates: start: 20230615, end: 20240106
  2. AMLODIPINE BESYLATE [Concomitant]
     Active Substance: AMLODIPINE BESYLATE
     Indication: Hypertension
     Dosage: UNK
     Route: 048

REACTIONS (10)
  - Blood creatinine abnormal [Recovering/Resolving]
  - Metabolic acidosis [Unknown]
  - Hyperkalaemia [Recovering/Resolving]
  - Asthenia [Unknown]
  - Blood urea abnormal [Recovering/Resolving]
  - Blood chloride abnormal [Recovering/Resolving]
  - Blood uric acid abnormal [Recovering/Resolving]
  - Blood phosphorus abnormal [Recovering/Resolving]
  - Blood bicarbonate abnormal [Recovering/Resolving]
  - Blood sodium abnormal [Recovering/Resolving]

NARRATIVE: CASE EVENT DATE: 20240102
